FAERS Safety Report 22614171 (Version 1)
Quarter: 2023Q2

REPORT INFORMATION
  Report Type: Spontaneous
  Country: US (occurrence: US)
  Receive Date: 20230619
  Receipt Date: 20230619
  Transmission Date: 20230722
  Serious: No
  Sender: FDA-Public Use
  Company Number: US-BRISTOL-MYERS SQUIBB COMPANY-2023-080021

PATIENT
  Age: 69 Year
  Sex: Male

DRUGS (1)
  1. LENALIDOMIDE [Suspect]
     Active Substance: LENALIDOMIDE
     Indication: Plasma cell myeloma in remission
     Dosage: ONE CAPSULE BY MOUTH EVERY NIGHT
     Route: 048
     Dates: start: 20221026

REACTIONS (1)
  - Product dose omission issue [Unknown]
